FAERS Safety Report 11013736 (Version 2)
Quarter: 2015Q2

REPORT INFORMATION
  Report Type: Spontaneous
  Country: US (occurrence: US)
  Receive Date: 20150411
  Receipt Date: 20150526
  Transmission Date: 20150821
  Serious: No
  Sender: FDA-Public Use
  Company Number: US-JNJFOC-20140317275

PATIENT
  Sex: Female
  Weight: 45.36 kg

DRUGS (2)
  1. DITROPAN [Suspect]
     Active Substance: OXYBUTYNIN CHLORIDE
     Indication: MICTURITION URGENCY
     Route: 065
     Dates: start: 2014
  2. SANCTURA [Suspect]
     Active Substance: TROSPIUM CHLORIDE
     Indication: MICTURITION URGENCY
     Route: 065
     Dates: start: 2014, end: 2014

REACTIONS (1)
  - Drug ineffective [Unknown]

NARRATIVE: CASE EVENT DATE: 2014
